FAERS Safety Report 9188748 (Version 1)
Quarter: 2013Q1

REPORT INFORMATION
  Report Type: Spontaneous
  Country: JP (occurrence: JP)
  Receive Date: 20130326
  Receipt Date: 20130326
  Transmission Date: 20140127
  Serious: Yes (Hospitalization)
  Sender: FDA-Public Use
  Company Number: JP-ELI_LILLY_AND_COMPANY-JP201303006976

PATIENT
  Age: 69 Year
  Sex: Female
  Weight: 62 kg

DRUGS (5)
  1. ZYPREXA [Suspect]
     Indication: MAJOR DEPRESSION
     Dosage: UNK
     Route: 048
     Dates: end: 20130228
  2. PAXIL CR [Concomitant]
     Dosage: 50 MG, UNK
     Dates: start: 20130124
  3. CERCINE [Concomitant]
     Dosage: 12 MG, UNK
     Dates: start: 20130116
  4. LENDORMIN [Concomitant]
     Dosage: 0.25 MG, UNK
     Dates: start: 2011
  5. THYRADIN S [Concomitant]
     Dosage: 25 UG, UNK
     Dates: start: 20121129

REACTIONS (3)
  - Major depression [Not Recovered/Not Resolved]
  - Off label use [Recovered/Resolved]
  - Withdrawal syndrome [Not Recovered/Not Resolved]
